FAERS Safety Report 24233168 (Version 1)
Quarter: 2024Q3

REPORT INFORMATION
  Report Type: Spontaneous
  Country: US (occurrence: None)
  Receive Date: 20240820
  Receipt Date: 20240820
  Transmission Date: 20241016
  Serious: Yes (Death)
  Sender: Public
  Company Number: None

PATIENT
  Age: 85 Year
  Sex: Male

DRUGS (1)
  1. XDEMVY [Suspect]
     Active Substance: LOTILANER
     Indication: Demodex blepharitis
     Dosage: ONE DROP IN EACH EYE BID OPHTHALMIC
     Route: 047
     Dates: start: 20240807

REACTIONS (1)
  - Death [None]

NARRATIVE: CASE EVENT DATE: 20240810
